FAERS Safety Report 9086357 (Version 1)
Quarter: 2013Q1

REPORT INFORMATION
  Report Type: Report from Study
  Country: US (occurrence: US)
  Receive Date: 20130131
  Receipt Date: 20130131
  Transmission Date: 20140127
  Serious: No
  Sender: FDA-Public Use
  Company Number: US-ABBOTT-12P-163-1002381-00

PATIENT
  Age: 33 Year
  Sex: Female

DRUGS (16)
  1. HUMIRA [Suspect]
     Indication: COLITIS ULCERATIVE
     Dates: start: 20121013
  2. PREDNISONE [Suspect]
     Indication: INFLAMMATION
     Dosage: 15MG DAILY
     Route: 048
  3. NORCO [Concomitant]
     Indication: PRODUCT USED FOR UNKNOWN INDICATION
     Dosage: 10/325MG
     Route: 048
  4. DEPLIN [Concomitant]
     Indication: DEPRESSION
     Route: 048
  5. NEURONTIN [Concomitant]
     Indication: NEURALGIA
     Dosage: AT NIGHT
     Route: 048
  6. NEURONTIN [Concomitant]
     Indication: ANXIETY
  7. TRAZODONE [Concomitant]
     Indication: INSOMNIA
     Dosage: AT NIGHT
     Route: 048
  8. XANAX [Concomitant]
     Indication: NERVOUSNESS
     Dosage: 5MG DAILY
     Route: 048
  9. CYMBALTA [Concomitant]
     Indication: PRODUCT USED FOR UNKNOWN INDICATION
     Dosage: AT NIGHT
     Route: 048
  10. YASMIN [Concomitant]
     Indication: CONTRACEPTION
     Dosage: 1 DAILY
  11. PHENERGAN [Concomitant]
     Indication: NAUSEA
     Route: 048
  12. CREON [Concomitant]
     Indication: PANCREATIC DISORDER
     Dosage: 2 BEFORE MEALS
     Route: 048
  13. CYCLOBENZAPRINE [Concomitant]
     Indication: PRODUCT USED FOR UNKNOWN INDICATION
     Dosage: BEFORE 3PM
     Route: 048
  14. LEVOTHYROXINE [Concomitant]
     Indication: HYPOTHYROIDISM
     Dosage: 0.25MG EVERY AM
     Route: 048
  15. CANASA [Concomitant]
     Indication: COLITIS ULCERATIVE
     Dosage: AT BEDTIME
  16. HYOSCYAMINE [Concomitant]
     Indication: COLITIS ULCERATIVE
     Route: 060

REACTIONS (8)
  - Asthenia [Not Recovered/Not Resolved]
  - Angioedema [Not Recovered/Not Resolved]
  - Feeling hot [Not Recovered/Not Resolved]
  - Nausea [Not Recovered/Not Resolved]
  - Abdominal pain [Not Recovered/Not Resolved]
  - Nausea [Not Recovered/Not Resolved]
  - Fatigue [Not Recovered/Not Resolved]
  - Nervousness [Not Recovered/Not Resolved]
